FAERS Safety Report 20260931 (Version 1)
Quarter: 2021Q4

REPORT INFORMATION
  Report Type: Report from Study
  Country: JP (occurrence: JP)
  Receive Date: 20211230
  Receipt Date: 20211230
  Transmission Date: 20220303
  Serious: Yes (Death, Hospitalization, Other)
  Sender: FDA-Public Use
  Company Number: JP-TAKEDA-2021TJP139797

PATIENT
  Age: 75 Year
  Sex: Male
  Weight: 51 kg

DRUGS (2)
  1. BRIGATINIB [Suspect]
     Active Substance: BRIGATINIB
     Indication: Lung adenocarcinoma stage IV
     Dosage: 90 MILLIGRAM
     Route: 065
     Dates: start: 20211119, end: 20211122
  2. BRIGATINIB [Suspect]
     Active Substance: BRIGATINIB
     Dosage: 60 MILLIGRAM
     Route: 065
     Dates: start: 20211211, end: 20211213

REACTIONS (3)
  - Lung adenocarcinoma stage IV [Unknown]
  - Disease progression [Unknown]
  - Cardiac failure [Fatal]

NARRATIVE: CASE EVENT DATE: 20211213
